FAERS Safety Report 6817532-9 (Version None)
Quarter: 2010Q3

REPORT INFORMATION
  Report Type: 
  Country: None (occurrence: None)
  Receive Date: 20100706
  Receipt Date: 20100624
  Transmission Date: 20110219
  Serious: Yes (Other)
  Sender: FDA-Public Use
  Company Number: B0663560A

PATIENT
  Age: 51 Year
  Sex: Male

DRUGS (6)
  1. METRONIDAZOLE [Suspect]
     Dosage: 500MG THREE TIMES PER DAY
  2. CEFTRIAXONE (ROCEPHIN) [Concomitant]
  3. VANCOMYCIN [Concomitant]
  4. THIAMPHENICOL [Concomitant]
  5. CEFTAZIDIME [Concomitant]
     Dosage: 6G PER DAY
  6. VITAMIN TAB [Concomitant]

REACTIONS (7)
  - BALANCE DISORDER [None]
  - CEREBELLAR SYNDROME [None]
  - DYSARTHRIA [None]
  - ENCEPHALOPATHY [None]
  - GAIT DISTURBANCE [None]
  - NUCLEAR MAGNETIC RESONANCE IMAGING ABNORMAL [None]
  - SPEECH DISORDER [None]
